FAERS Safety Report 10466123 (Version 2)
Quarter: 2014Q4

REPORT INFORMATION
  Report Type: Spontaneous
  Country: PL (occurrence: PL)
  Receive Date: 20140922
  Receipt Date: 20141110
  Transmission Date: 20150528
  Serious: Yes (Death, Hospitalization)
  Sender: FDA-Public Use
  Company Number: PL-AUROBINDO-AUR-APL-2014-09998

PATIENT
  Age: 54 Year
  Sex: Male

DRUGS (1)
  1. METFORMIN [Suspect]
     Active Substance: METFORMIN HYDROCHLORIDE
     Indication: PRODUCT USED FOR UNKNOWN INDICATION
     Dosage: 1000 MG, SINGLE INGESTION OF 100 TABLETS
     Route: 048

REACTIONS (15)
  - Multi-organ failure [Fatal]
  - Circulatory collapse [Unknown]
  - Vomiting [Unknown]
  - Intentional overdose [Unknown]
  - Suicide attempt [Unknown]
  - Bradycardia [Unknown]
  - Blood glucose increased [Unknown]
  - Hypoglycaemia [Unknown]
  - Blood lactic acid increased [Unknown]
  - Loss of consciousness [Unknown]
  - Respiratory failure [Unknown]
  - Metabolic acidosis [Unknown]
  - Nausea [Unknown]
  - Toxicity to various agents [Unknown]
  - Asthenia [Unknown]
